FAERS Safety Report 8105673 (Version 3)
Quarter: 2013Q4

REPORT INFORMATION
  Report Type: Spontaneous
  Country: US (occurrence: US)
  Receive Date: 20110825
  Receipt Date: 20131127
  Transmission Date: 20140711
  Serious: Yes (Hospitalization, Other)
  Sender: FDA-Public Use
  Company Number: US-BAYER-2011-075815

PATIENT
  Age: 24 Year
  Sex: Female
  Weight: 90.7 kg

DRUGS (8)
  1. YAZ [Suspect]
     Indication: PREMENSTRUAL SYNDROME
     Dosage: UNK
     Dates: start: 200808, end: 200812
  2. THYROID PREPARATIONS [Concomitant]
  3. BENTYL [Concomitant]
     Dosage: UNK
     Route: 048
     Dates: start: 20100111
  4. TYLENOL #3 [Concomitant]
     Dosage: UNK
     Route: 048
     Dates: start: 20100111
  5. ZOFRAN [Concomitant]
     Dosage: UNK
     Route: 048
     Dates: start: 20100111
  6. ALBUTEROL [Concomitant]
     Dosage: UNK
     Route: 045
     Dates: start: 20100111
  7. DEMEROL [Concomitant]
     Dosage: UNK
     Route: 042
     Dates: start: 20100111
  8. PHENERGAN [Concomitant]
     Dosage: UNK
     Route: 042
     Dates: start: 20100111

REACTIONS (2)
  - Gallbladder injury [None]
  - Cholelithiasis [None]
